FAERS Safety Report 6728887-8 (Version None)
Quarter: 2010Q2

REPORT INFORMATION
  Report Type: 
  Country: None (occurrence: None)
  Receive Date: 20100517
  Receipt Date: 20100226
  Transmission Date: 20101027
  Serious: No
  Sender: FDA-Public Use
  Company Number: US-ABBOTT-10P-163-0629979-00

PATIENT
  Age: 71 Year
  Sex: Male
  Weight: 88.53 kg

DRUGS (1)
  1. SIMCOR [Suspect]
     Indication: BLOOD CHOLESTEROL INCREASED
     Dosage: 500/20
     Dates: start: 20090901

REACTIONS (2)
  - CHANGE OF BOWEL HABIT [None]
  - LIBIDO INCREASED [None]
